FAERS Safety Report 17756825 (Version 1)
Quarter: 2020Q2

REPORT INFORMATION
  Report Type: Spontaneous
  Country: GB (occurrence: GB)
  Receive Date: 20200507
  Receipt Date: 20200507
  Transmission Date: 20200714
  Serious: Yes (Death, Disabling)
  Sender: FDA-Public Use
  Company Number: GB-PFIZER INC-2020180247

PATIENT
  Age: 59 Year
  Sex: Male

DRUGS (2)
  1. DOXYCYCLINE MONOHYDRATE [Suspect]
     Active Substance: DOXYCYCLINE
     Dosage: 100 MG
     Dates: start: 202003
  2. DOXYCYCLINE MONOHYDRATE [Suspect]
     Active Substance: DOXYCYCLINE
     Indication: COUGH
     Dosage: WITH THE FIRST DOSE TO BE A DOUBLE DOSE
     Dates: start: 20200316

REACTIONS (8)
  - Myalgia [Recovered/Resolved]
  - Malaise [Recovered/Resolved]
  - Myocardial infarction [Fatal]
  - Dysstasia [Recovered/Resolved]
  - Chest discomfort [Recovered/Resolved]
  - Body temperature decreased [Recovered/Resolved]
  - Hyperhidrosis [Recovered/Resolved]
  - Drug ineffective [Unknown]

NARRATIVE: CASE EVENT DATE: 20200316
